FAERS Safety Report 7355123-4 (Version None)
Quarter: 2011Q1

REPORT INFORMATION
  Report Type: 
  Country: None (occurrence: None)
  Receive Date: 20110307
  Receipt Date: 20100721
  Transmission Date: 20110831
  Serious: No
  Sender: FDA-Public Use
  Company Number: AEDEU201000276

PATIENT
  Age: 53 Year
  Sex: Male

DRUGS (3)
  1. VIANI [Concomitant]
  2. PROLASTIN [Suspect]
     Indication: ALPHA-1 ANTI-TRYPSIN DEFICIENCY
     Dosage: 4 GM;QW;IV
     Route: 042
  3. SPIRIVA [Concomitant]

REACTIONS (1)
  - THROMBOCYTOPENIA [None]
